FAERS Safety Report 9845044 (Version 3)
Quarter: 2014Q1

REPORT INFORMATION
  Report Type: Spontaneous
  Country: FR (occurrence: None)
  Receive Date: 20140122
  Receipt Date: 20140320
  Transmission Date: 20141002
  Serious: Yes (Hospitalization)
  Sender: FDA-Public Use
  Company Number: AXC-2014-000032

PATIENT
  Age: 59 Year
  Sex: Male

DRUGS (5)
  1. PYLERA [Suspect]
     Indication: HELICOBACTER GASTRITIS
     Dosage: 3 DF, QID, ORAL
     Route: 048
     Dates: start: 20131209, end: 20131223
  2. COUMADIN /00014802/ (WARFARIN SODIUM) [Concomitant]
  3. VISKEN (PINDOLOL) [Concomitant]
  4. ACYCLOVIR /00587301/ (ACICLOVIR) [Concomitant]
  5. KEPPRA (LEVETIRACETAM) [Concomitant]

REACTIONS (23)
  - Encephalopathy [None]
  - Oral herpes [None]
  - Headache [None]
  - Visual impairment [None]
  - Dyskinesia [None]
  - Myoclonus [None]
  - Tremor [None]
  - Confusional state [None]
  - Delirium [None]
  - Hallucination [None]
  - Memory impairment [None]
  - Agitation [None]
  - Aggression [None]
  - Asthenia [None]
  - International normalised ratio increased [None]
  - Aggression [None]
  - Malaise [None]
  - Herpes simplex meningoencephalitis [None]
  - Blood thyroid stimulating hormone decreased [None]
  - Blood bilirubin increased [None]
  - Procalcitonin increased [None]
  - Incorrect drug administration duration [None]
  - Partial seizures [None]
